FAERS Safety Report 7001022-7 (Version None)
Quarter: 2010Q3

REPORT INFORMATION
  Report Type: 
  Country: None (occurrence: None)
  Receive Date: 20100920
  Receipt Date: 20070705
  Transmission Date: 20110219
  Serious: Yes (Other)
  Sender: FDA-Public Use
  Company Number: US-ASTRAZENECA-2006UW23231

PATIENT
  Age: 495 Month
  Sex: Male
  Weight: 82.1 kg

DRUGS (16)
  1. SEROQUEL [Suspect]
     Indication: DEPRESSION
     Dosage: 25-100 MG
     Route: 048
     Dates: start: 20050704
  2. SEROQUEL [Suspect]
     Route: 048
  3. RISPERDAL [Concomitant]
  4. ZYPREXA [Concomitant]
  5. XANAX [Concomitant]
     Dates: start: 20030103
  6. VALIUM [Concomitant]
     Dates: start: 20030103
  7. BUSPAR [Concomitant]
     Dates: start: 20050823
  8. RESTORIL [Concomitant]
     Dates: start: 20050823
  9. TRAZODONE HCL [Concomitant]
     Dates: start: 20050823
  10. KLONOPIN [Concomitant]
     Dates: start: 20050717
  11. LORAZEPAM [Concomitant]
     Dates: start: 20050704
  12. PHENOBARBITAL SODIUM 100MG CAP [Concomitant]
     Dosage: 30-260 MG
     Dates: start: 20050704
  13. THIAMINE HCL [Concomitant]
     Dates: start: 20050704
  14. GABAPENTIN [Concomitant]
     Dates: start: 20050704
  15. PROTONIX [Concomitant]
     Dates: start: 20050705
  16. LEXAPRO [Concomitant]
     Dates: start: 20050705

REACTIONS (2)
  - ALCOHOLIC PANCREATITIS [None]
  - PANCREATITIS [None]
